FAERS Safety Report 7358991-5 (Version None)
Quarter: 2011Q1

REPORT INFORMATION
  Report Type: 
  Country: None (occurrence: None)
  Receive Date: 20110310
  Receipt Date: 20110223
  Transmission Date: 20110831
  Serious: Yes (Disabling)
  Sender: FDA-Public Use
  Company Number: ACO_20814_2010

PATIENT
  Age: 49 Year
  Sex: Female
  Weight: 140.6 kg

DRUGS (8)
  1. MECLIZINE /0007280 (MECLOZINE) [Concomitant]
  2. TEGRETOL [Concomitant]
  3. OXYCODONE HCL [Concomitant]
  4. OXYBUTYNIN [Concomitant]
  5. CENTRUM /00554501/ (MINERALS NOS, VITAMINS NOS) [Concomitant]
  6. AMPYRA [Suspect]
     Indication: GAIT DISTURBANCE
     Dosage: 10 MG, Q 12 HRS, ORAL
     Route: 048
     Dates: start: 20101110, end: 20110101
  7. COPAXONE [Concomitant]
  8. MEXILETINE HCL [Concomitant]

REACTIONS (4)
  - DRUG INEFFECTIVE [None]
  - GAIT DISTURBANCE [None]
  - URINARY INCONTINENCE [None]
  - WHEELCHAIR USER [None]
